FAERS Safety Report 6045551-1 (Version None)
Quarter: 2009Q1

REPORT INFORMATION
  Report Type: 
  Country: None (occurrence: None)
  Receive Date: 20090121
  Receipt Date: 20081210
  Transmission Date: 20090719
  Serious: Yes (Other)
  Sender: FDA-Public Use
  Company Number: B0555106A

PATIENT
  Age: 51 Year
  Sex: Female

DRUGS (4)
  1. COMBIVIR [Suspect]
     Indication: ANTIVIRAL PROPHYLAXIS
     Dosage: 1TAB TWICE PER DAY
     Route: 048
     Dates: start: 20081201
  2. KALETRA [Suspect]
     Indication: ANTIVIRAL PROPHYLAXIS
     Dosage: 2UNIT TWICE PER DAY
     Route: 048
     Dates: start: 20081201, end: 20081208
  3. DEROXAT [Concomitant]
     Indication: DEPRESSION
     Route: 048
  4. LEXOMIL [Concomitant]
     Indication: ANXIETY
     Dosage: .5TAB PER DAY
     Route: 048

REACTIONS (8)
  - DEPRESSION [None]
  - LOSS OF CONSCIOUSNESS [None]
  - MALAISE [None]
  - MYALGIA [None]
  - NAUSEA [None]
  - PARAESTHESIA [None]
  - TACHYCARDIA [None]
  - TEARFULNESS [None]
